FAERS Safety Report 7803020-X (Version None)
Quarter: 2011Q4

REPORT INFORMATION
  Report Type: 
  Country: None (occurrence: None)
  Receive Date: 20111007
  Receipt Date: 20110927
  Transmission Date: 20120403
  Serious: Yes (Other)
  Sender: FDA-Public Use
  Company Number: US-BAYER-2011-091924

PATIENT
  Age: 28 Year
  Sex: Female

DRUGS (2)
  1. YAZ [Suspect]
     Dosage: UNK
     Dates: start: 20080827
  2. YASMIN [Suspect]
     Dosage: UNK
     Dates: start: 20060511, end: 20080118

REACTIONS (2)
  - INJURY [None]
  - CHOLECYSTECTOMY [None]
